FAERS Safety Report 7200409-7 (Version None)
Quarter: 2010Q4

REPORT INFORMATION
  Report Type: 
  Country: None (occurrence: None)
  Receive Date: 20101214
  Receipt Date: 20101130
  Transmission Date: 20110411
  Serious: Yes (Death, Other)
  Sender: FDA-Public Use
  Company Number: 011272

PATIENT
  Age: 73 Year
  Sex: Male

DRUGS (9)
  1. PLETAL [Suspect]
     Indication: ARTERIOSCLEROSIS OBLITERANS
     Dosage: 100 MG, BID, ORAL
     Route: 048
     Dates: start: 20090626, end: 20090718
  2. DIOVAN [Concomitant]
  3. B-BLOCKING AGENTS (B-BLOCKING AGENTS) [Concomitant]
  4. DECADRON [Concomitant]
  5. ALFAROL (ALFACALCIDOL) [Concomitant]
  6. RABEPRAZOLE SODIUM [Concomitant]
  7. CALTAN (PRECIPITATED CALCIUM CARBONATE) [Concomitant]
  8. NEUROTROPIN (AN EXTRACT OBTAINED FORM INFLAMMATORY RABBIT SKIN INOCULA [Concomitant]
  9. PROMAC JPN (POLAPREZINC) [Concomitant]

REACTIONS (6)
  - BLEEDING TIME PROLONGED [None]
  - INFECTION SUSCEPTIBILITY INCREASED [None]
  - MALIGNANT NEOPLASM PROGRESSION [None]
  - MULTIPLE MYELOMA [None]
  - PNEUMONIA [None]
  - SEPSIS [None]
